FAERS Safety Report 11705439 (Version 1)
Quarter: 2015Q4

REPORT INFORMATION
  Report Type: Other
  Country: SE (occurrence: SE)
  Receive Date: 20151106
  Receipt Date: 20151106
  Transmission Date: 20160304
  Serious: Yes (Disabling)
  Sender: FDA-Public Use
  Company Number: SE-MYLANLABS-2015M1036765

PATIENT

DRUGS (1)
  1. SERTRALIN MYLAN 50 MG FILMDRAGERAD TABLETT [Suspect]
     Active Substance: SERTRALINE HYDROCHLORIDE
     Indication: BURNOUT SYNDROME
     Dosage: 50 MG, QD
     Dates: start: 20150722, end: 20150818

REACTIONS (4)
  - Joint swelling [None]
  - Peripheral swelling [None]
  - Joint effusion [None]
  - Arthritis [Not Recovered/Not Resolved]

NARRATIVE: CASE EVENT DATE: 20150725
